FAERS Safety Report 6171635-3 (Version None)
Quarter: 2009Q2

REPORT INFORMATION
  Report Type: 
  Country: None (occurrence: None)
  Receive Date: 20090428
  Receipt Date: 20090428
  Transmission Date: 20091009
  Serious: Yes (Hospitalization)
  Sender: FDA-Public Use
  Company Number: None

PATIENT
  Age: 48 Year
  Sex: Male
  Weight: 28.7807 kg

DRUGS (11)
  1. OXANDROLONE [Suspect]
     Indication: ANOREXIA
     Dosage: 2.5 MG ONCE EVERYDAY INJ
     Dates: start: 20090419, end: 20090420
  2. SEROQUEL [Concomitant]
  3. HALOPERIDOL DECANOATE [Concomitant]
  4. TRAZODONE HCL [Concomitant]
  5. HYDROCHLOROTHIAZIDE [Concomitant]
  6. FERROUS SULFATE TAB [Concomitant]
  7. MAALOX [Concomitant]
  8. VISTARIL [Concomitant]
  9. THORAZINE [Concomitant]
  10. COGENTIN [Concomitant]
  11. ATROVENT/ALBUTEROL NEB [Concomitant]

REACTIONS (2)
  - LIP SWELLING [None]
  - SWELLING FACE [None]
